FAERS Safety Report 4618715-9 (Version None)
Quarter: 2005Q1

REPORT INFORMATION
  Report Type: 
  Country: None (occurrence: None)
  Receive Date: 20050323
  Receipt Date: 20050309
  Transmission Date: 20050727
  Serious: No
  Sender: FDA-Public Use
  Company Number: USA050291256

PATIENT
  Age: 15 Year
  Sex: Male

DRUGS (2)
  1. STRATTERA [Suspect]
     Dates: start: 20041101, end: 20050223
  2. METADASTE CD (METHYLPHENIDATE HYDROCHLORIDE) [Concomitant]

REACTIONS (1)
  - BLOOD BILIRUBIN INCREASED [None]
